FAERS Safety Report 8417695-8 (Version None)
Quarter: 2012Q2

REPORT INFORMATION
  Report Type: 
  Country: None (occurrence: None)
  Receive Date: 20120607
  Receipt Date: 20120517
  Transmission Date: 20120825
  Serious: No
  Sender: FDA-Public Use
  Company Number: US-ASTRAZENECA-2011SE41437

PATIENT
  Age: 63 Year
  Sex: Female

DRUGS (22)
  1. HYDROCODONE BITARTRATE [Concomitant]
     Dosage: 5-500 MG
     Route: 065
  2. LISINOPRIL [Concomitant]
  3. ASPIRIN [Concomitant]
     Dosage: 81 MG
     Route: 065
  4. LOSARTA [Concomitant]
     Indication: HYPERTENSION
  5. HYDROCODONE BITARTRATE [Concomitant]
     Indication: PAIN
     Dates: start: 20090804
  6. HYZAAR [Concomitant]
     Dates: start: 20090803
  7. VICODIN [Concomitant]
     Indication: PAIN
     Dosage: 5 TO 500 MG I BID
     Route: 065
  8. DIOVAN [Concomitant]
  9. LOSARTAN PATASSIUM [Concomitant]
     Route: 048
  10. AMLOPIDI [Concomitant]
     Indication: HYPERTENSION
     Dates: start: 20091130
  11. VICODIN [Concomitant]
     Dosage: 5-500 MG
     Route: 065
  12. ZOLPIDEM TARTRATE [Concomitant]
     Route: 065
  13. HYDROCODONE BITARTRATE + ACETAMINOPHEN [Concomitant]
     Indication: PAIN
     Dosage: 5-500 MG EVERY SIX HOUR
     Route: 065
  14. NEXIUM [Suspect]
     Indication: GASTROOESOPHAGEAL REFLUX DISEASE
     Route: 048
     Dates: start: 20010101, end: 20110601
  15. NEXIUM [Suspect]
     Route: 048
  16. PREVACID [Concomitant]
  17. AMLODIPINE BESYLATE [Concomitant]
     Route: 065
  18. NEXIUM [Suspect]
     Route: 048
     Dates: start: 20090806
  19. HYDROCHLOROTHIAZIDE [Concomitant]
     Route: 065
  20. NEXIUM [Suspect]
     Route: 048
     Dates: start: 20050101, end: 20110501
  21. AMBTEN CR [Concomitant]
     Dosage: 12.5 MG
     Dates: start: 20090804
  22. VICODIN [Concomitant]
     Dosage: 5-500 MG
     Route: 065

REACTIONS (16)
  - COUGH [None]
  - JOINT INJURY [None]
  - POST-TRAUMATIC STRESS DISORDER [None]
  - EMOTIONAL DISTRESS [None]
  - DEPRESSION [None]
  - PAIN [None]
  - HYPOVITAMINOSIS [None]
  - INFECTION [None]
  - TOOTH ABSCESS [None]
  - ARTHRALGIA [None]
  - ANXIETY [None]
  - OSTEOPOROSIS [None]
  - VOMITING [None]
  - MULTIPLE FRACTURES [None]
  - RIB FRACTURE [None]
  - ACCIDENT AT WORK [None]
